FAERS Safety Report 8924585 (Version 2)
Quarter: 2013Q1

REPORT INFORMATION
  Report Type: Spontaneous
  Country: US (occurrence: US)
  Receive Date: 20121126
  Receipt Date: 20130305
  Transmission Date: 20140127
  Serious: No
  Sender: FDA-Public Use
  Company Number: US-PFIZER INC-2012293074

PATIENT
  Age: 50 Year
  Sex: Female
  Weight: 96.6 kg

DRUGS (3)
  1. LYRICA [Suspect]
     Indication: FIBROMYALGIA
     Dosage: UNK, 2X/DAY
     Route: 048
     Dates: start: 2008, end: 201209
  2. CYMBALTA [Concomitant]
     Dosage: UNK
  3. EFFEXOR-XR [Concomitant]
     Dosage: 75 MG, UNK

REACTIONS (6)
  - Weight decreased [Unknown]
  - Muscle spasms [Unknown]
  - Glycosylated haemoglobin decreased [Unknown]
  - Blood potassium decreased [Unknown]
  - Thyroid function test abnormal [Unknown]
  - Blood calcium decreased [Unknown]
